FAERS Safety Report 6820979-8 (Version None)
Quarter: 2010Q3

REPORT INFORMATION
  Report Type: 
  Country: None (occurrence: None)
  Receive Date: 20100707
  Receipt Date: 20070803
  Transmission Date: 20110219
  Serious: No
  Sender: FDA-Public Use
  Company Number: US-PFIZER INC-2007064846

PATIENT
  Sex: Female
  Weight: 41.818 kg

DRUGS (4)
  1. ZOLOFT [Suspect]
     Indication: DEPRESSION
     Route: 048
     Dates: start: 20060101
  2. ZOLOFT [Suspect]
     Indication: OBSESSIVE-COMPULSIVE DISORDER
  3. MONTELUKAST SODIUM [Concomitant]
  4. FLONASE [Concomitant]

REACTIONS (1)
  - BREAST DISCHARGE [None]
